FAERS Safety Report 14135873 (Version 4)
Quarter: 2018Q3

REPORT INFORMATION
  Report Type: Report from Study
  Country: US (occurrence: US)
  Receive Date: 20171026
  Receipt Date: 20180723
  Transmission Date: 20181010
  Serious: No
  Sender: FDA-Public Use
  Company Number: US-AMGEN-USASP2017134312

PATIENT
  Age: 68 Year
  Sex: Male

DRUGS (3)
  1. REPATHA [Suspect]
     Active Substance: EVOLOCUMAB
     Indication: HYPERCHOLESTEROLAEMIA
     Dosage: 140 MG, Q2WK
     Route: 058
     Dates: start: 2017
  2. REPATHA [Suspect]
     Active Substance: EVOLOCUMAB
     Indication: BLOOD CHOLESTEROL INCREASED
     Dosage: 140 MG, Q2WK
     Route: 058
  3. GLIMEPIRIDE. [Concomitant]
     Active Substance: GLIMEPIRIDE
     Indication: DIABETES MELLITUS
     Dosage: UNK, QOD

REACTIONS (10)
  - Drug dose omission [Unknown]
  - Tooth infection [Unknown]
  - Fall [Unknown]
  - Arthralgia [Not Recovered/Not Resolved]
  - Rhinorrhoea [Unknown]
  - Tooth fracture [Unknown]
  - Sciatica [Unknown]
  - Musculoskeletal pain [Unknown]
  - Therapeutic response unexpected [Unknown]
  - Weight decreased [Unknown]

NARRATIVE: CASE EVENT DATE: 201711
